FAERS Safety Report 24401139 (Version 2)
Quarter: 2024Q4

REPORT INFORMATION
  Report Type: Report from Study
  Country: US (occurrence: US)
  Receive Date: 20241006
  Receipt Date: 20241016
  Transmission Date: 20250114
  Serious: No
  Sender: ABBVIE
  Company Number: US-ABBVIE-5947264

PATIENT
  Sex: Female
  Weight: 80.739 kg

DRUGS (2)
  1. VENCLEXTA [Suspect]
     Active Substance: VENETOCLAX
     Indication: Mantle cell lymphoma
     Dosage: STRENGTH 400 MG
     Route: 048
     Dates: start: 20240703
  2. BRUKINSA [Concomitant]
     Active Substance: ZANUBRUTINIB
     Indication: Lymphoma

REACTIONS (5)
  - Lymphoedema [Not Recovered/Not Resolved]
  - Fluid retention [Not Recovered/Not Resolved]
  - Fatigue [Unknown]
  - Emotional disorder [Unknown]
  - Asthenia [Unknown]

NARRATIVE: CASE EVENT DATE: 20240101
